FAERS Safety Report 10045310 (Version 1)
Quarter: 2014Q1

REPORT INFORMATION
  Report Type: Spontaneous
  Country: US (occurrence: US)
  Receive Date: 20140328
  Receipt Date: 20140328
  Transmission Date: 20141002
  Serious: Yes (Other)
  Sender: FDA-Public Use
  Company Number: US-BAYER-2014-044398

PATIENT
  Age: 32 Year
  Sex: Female

DRUGS (1)
  1. ACETYLSALICYLIC ACID (} 100 MG) [Suspect]

REACTIONS (6)
  - Gastrointestinal haemorrhage [None]
  - Gastrointestinal ulcer [None]
  - Gastric perforation [None]
  - Protein-losing gastroenteropathy [None]
  - Malnutrition [None]
  - Anaemia [None]
